FAERS Safety Report 7771998-9 (Version None)
Quarter: 2011Q3

REPORT INFORMATION
  Report Type: 
  Country: None (occurrence: None)
  Receive Date: 20110922
  Receipt Date: 20110222
  Transmission Date: 20111222
  Serious: No
  Sender: FDA-Public Use
  Company Number: US-ASTRAZENECA-2011SE09932

PATIENT
  Sex: Female

DRUGS (4)
  1. SEROQUEL XR [Suspect]
     Route: 048
  2. LEXAPRO [Concomitant]
  3. SEROQUEL XR [Suspect]
     Route: 048
     Dates: start: 20110218
  4. KLONOPIN [Concomitant]

REACTIONS (4)
  - BODY TEMPERATURE INCREASED [None]
  - ERYTHEMA [None]
  - BLOOD PRESSURE INCREASED [None]
  - HEART RATE INCREASED [None]
